FAERS Safety Report 6842723-0 (Version None)
Quarter: 2010Q3

REPORT INFORMATION
  Report Type: 
  Country: None (occurrence: None)
  Receive Date: 20100714
  Receipt Date: 20070801
  Transmission Date: 20110219
  Serious: No
  Sender: FDA-Public Use
  Company Number: US-PFIZER INC-2007065726

PATIENT
  Sex: Female
  Weight: 63.6 kg

DRUGS (7)
  1. CHANTIX [Suspect]
     Indication: SMOKING CESSATION THERAPY
     Dates: start: 20070701
  2. LAMICTAL [Concomitant]
  3. LITHIUM [Concomitant]
  4. SYNTHROID [Concomitant]
  5. CELEXA [Concomitant]
  6. ALL OTHER THERAPEUTIC PRODUCTS [Concomitant]
  7. MULTI-VITAMINS [Concomitant]

REACTIONS (4)
  - ABDOMINAL PAIN UPPER [None]
  - NAUSEA [None]
  - SLEEP DISORDER [None]
  - VOMITING [None]
